FAERS Safety Report 7125749-1 (Version None)
Quarter: 2010Q4

REPORT INFORMATION
  Report Type: 
  Country: None (occurrence: None)
  Receive Date: 20101129
  Receipt Date: 20101117
  Transmission Date: 20110411
  Serious: Yes (Disabling)
  Sender: FDA-Public Use
  Company Number: B0682859A

PATIENT
  Sex: Female

DRUGS (3)
  1. AVAMYS [Suspect]
     Dosage: 110MCG TWICE PER DAY
     Route: 045
     Dates: start: 20101004
  2. AERIUS [Concomitant]
     Route: 048
     Dates: start: 20100930
  3. SOLUPRED [Concomitant]
     Dates: start: 20101101

REACTIONS (3)
  - MYOPIA [None]
  - OFF LABEL USE [None]
  - VISUAL ACUITY REDUCED [None]
